FAERS Safety Report 18579513 (Version 1)
Quarter: 2020Q4

REPORT INFORMATION
  Report Type: Spontaneous
  Country: US (occurrence: US)
  Receive Date: 20201204
  Receipt Date: 20201204
  Transmission Date: 20210114
  Serious: Yes (Other)
  Sender: FDA-Public Use
  Company Number: US-PFIZER INC-2020477610

PATIENT
  Age: 66 Year
  Sex: Female

DRUGS (2)
  1. XELJANZ [Suspect]
     Active Substance: TOFACITINIB CITRATE
     Dosage: 5 MG
     Dates: start: 20201115
  2. SULFASALAZINE. [Interacting]
     Active Substance: SULFASALAZINE
     Dosage: UNK

REACTIONS (2)
  - Myelosuppression [Unknown]
  - Drug interaction [Unknown]
